FAERS Safety Report 5328312-8 (Version None)
Quarter: 2007Q2

REPORT INFORMATION
  Report Type: 
  Country: None (occurrence: None)
  Receive Date: 20070518
  Receipt Date: 20070507
  Transmission Date: 20071010
  Serious: Yes (Other)
  Sender: FDA-Public Use
  Company Number: PHHO2007NZ07845

PATIENT
  Age: 64 Year
  Sex: Male
  Weight: 99 kg

DRUGS (5)
  1. ZOLEDRONATE [Suspect]
     Indication: METASTASES TO BONE
     Dosage: 4MG EVERY 4 WEEKS
     Route: 042
     Dates: start: 20051017, end: 20070330
  2. CALCIUM CHLORIDE [Concomitant]
  3. DOXAZOSIN MESYLATE [Concomitant]
     Indication: HYPERTENSION
  4. OMEPRAZOLE [Concomitant]
     Indication: GASTROOESOPHAGEAL REFLUX DISEASE
  5. ACCUPRIL [Concomitant]
     Indication: HYPERTENSION

REACTIONS (1)
  - OSTEONECROSIS [None]
